FAERS Safety Report 16536622 (Version 2)
Quarter: 2019Q3

REPORT INFORMATION
  Report Type: Spontaneous
  Country: CA (occurrence: CA)
  Receive Date: 20190706
  Receipt Date: 20190719
  Transmission Date: 20191004
  Serious: Yes (Life-Threatening, Hospitalization, Other)
  Sender: FDA-Public Use
  Company Number: CA-TEVA-2019-CA-1073053

PATIENT
  Age: 70 Year
  Sex: Female

DRUGS (11)
  1. TEVA-QUETIAPINE XR [Suspect]
     Active Substance: QUETIAPINE
     Indication: SLEEP DISORDER
     Dosage: 30 MILLIGRAM DAILY;
     Route: 048
     Dates: end: 20190511
  2. ESCITALOPRAM [Suspect]
     Active Substance: ESCITALOPRAM OXALATE
     Dosage: 20 MILLIGRAM DAILY;
     Route: 065
     Dates: end: 201905
  3. LORAZEPAM 2 MG [Concomitant]
     Active Substance: LORAZEPAM
     Indication: SLEEP DISORDER
  4. BACLOFEN 10MG [Concomitant]
     Active Substance: BACLOFEN
     Dosage: 30 MILLIGRAM DAILY; PRN
  5. ANACIN 325-30MG [Concomitant]
     Indication: HEADACHE
     Dosage: 325-30MG
  6. SPIRIVA 18MCG [Concomitant]
     Dosage: 18 MICROGRAM DAILY;
  7. T3 [Concomitant]
     Active Substance: LIOTHYRONINE SODIUM
     Indication: PAIN IN EXTREMITY
     Dosage: PATIENT STATES TOOK ABOUT ONCE A WEEK LEG PAIN
  8. VENTOLIN [Concomitant]
     Active Substance: ALBUTEROL SULFATE
     Dosage: 1-2 PUFFS PRN
  9. LORAZEPAM 2 MG [Concomitant]
     Active Substance: LORAZEPAM
     Indication: ANXIETY
     Dosage: 6 MILLIGRAM DAILY; (AS NEEDED)
  10. TEVA-QUETIAPINE XR [Suspect]
     Active Substance: QUETIAPINE
     Indication: AFFECTIVE DISORDER
  11. TRIAZIDE 50-25 [Concomitant]
     Dosage: 50-25

REACTIONS (10)
  - Blood pressure measurement [Recovered/Resolved]
  - Fall [Unknown]
  - Neuroleptic malignant syndrome [Unknown]
  - Serotonin syndrome [Unknown]
  - Diabetes mellitus [Recovered/Resolved]
  - Rhabdomyolysis [Unknown]
  - Sedation [Unknown]
  - Myocardial infarction [Recovered/Resolved]
  - Drug level increased [Unknown]
  - Delirium [Unknown]

NARRATIVE: CASE EVENT DATE: 20190511
